FAERS Safety Report 5321813-8 (Version None)
Quarter: 2007Q2

REPORT INFORMATION
  Report Type: 
  Country: None (occurrence: None)
  Receive Date: 20070510
  Receipt Date: 20070430
  Transmission Date: 20071010
  Serious: Yes (Other)
  Sender: FDA-Public Use
  Company Number: US-PFIZER INC-2007035433

PATIENT
  Sex: Female
  Weight: 58.181 kg

DRUGS (2)
  1. CADUET [Suspect]
     Indication: BLOOD CHOLESTEROL INCREASED
     Dosage: TEXT:5/20MG
     Dates: start: 20070109, end: 20070112
  2. CADUET [Suspect]
     Indication: HYPERTENSION

REACTIONS (11)
  - ACTIVITIES OF DAILY LIVING IMPAIRED [None]
  - ASTHENIA [None]
  - DISORIENTATION [None]
  - FATIGUE [None]
  - GAIT DISTURBANCE [None]
  - HEADACHE [None]
  - JOINT CREPITATION [None]
  - MOVEMENT DISORDER [None]
  - MUSCLE DISORDER [None]
  - NAUSEA [None]
  - VOMITING [None]
